FAERS Safety Report 25763545 (Version 1)
Quarter: 2025Q3

REPORT INFORMATION
  Report Type: Spontaneous
  Country: US (occurrence: US)
  Receive Date: 20250905
  Receipt Date: 20250905
  Transmission Date: 20251021
  Serious: No
  Sender: DOMPE FARMACEUTICI
  Company Number: US-FARMAPROD-202410-3605

PATIENT
  Age: 80 Year
  Sex: Female

DRUGS (19)
  1. OXERVATE [Suspect]
     Active Substance: CENEGERMIN-BKBJ
     Indication: Neurotrophic keratopathy
     Route: 047
     Dates: start: 20241011
  2. OXERVATE [Suspect]
     Active Substance: CENEGERMIN-BKBJ
  3. VITAMINS [Concomitant]
     Active Substance: VITAMINS
  4. MAGNESIUM [Concomitant]
     Active Substance: MAGNESIUM
  5. ULTRA OMEGA-3 [Concomitant]
  6. VITAMIN D-400 [Concomitant]
  7. COENZYME Q10 [Concomitant]
     Active Substance: DIETARY SUPPLEMENT\UBIDECARENONE
  8. PROBIOTICS NOS [Concomitant]
     Active Substance: PROBIOTICS NOS
  9. XANAX [Concomitant]
     Active Substance: ALPRAZOLAM
  10. LUMIGAN [Concomitant]
     Active Substance: BIMATOPROST
  11. FAMOTIDINE [Concomitant]
     Active Substance: FAMOTIDINE
  12. CRESTOR [Concomitant]
     Active Substance: ROSUVASTATIN CALCIUM
  13. PLAVIX [Concomitant]
     Active Substance: CLOPIDOGREL BISULFATE
  14. BYSTOLIC [Concomitant]
     Active Substance: NEBIVOLOL HYDROCHLORIDE
  15. BENICAR [Concomitant]
     Active Substance: OLMESARTAN MEDOXOMIL
  16. GENTEAL TEARS SEVERE [Concomitant]
     Active Substance: HYPROMELLOSE 2910 (4000 MPA.S)
  17. DHA SUPPLEMENT [Concomitant]
  18. SYNERGY SUPPLEMENT [Concomitant]
  19. STELLAR C SUPPLEMENT [Concomitant]

REACTIONS (7)
  - Product dose omission issue [Unknown]
  - Foreign body sensation in eyes [Not Recovered/Not Resolved]
  - Eye pain [Recovering/Resolving]
  - Eye irritation [Unknown]
  - Headache [Unknown]
  - Photophobia [Unknown]
  - Rhinalgia [Unknown]

NARRATIVE: CASE EVENT DATE: 20241011
